FAERS Safety Report 12067963 (Version 1)
Quarter: 2016Q1

REPORT INFORMATION
  Report Type: Spontaneous
  Country: US (occurrence: US)
  Receive Date: 20160211
  Receipt Date: 20160211
  Transmission Date: 20160526
  Serious: No
  Sender: FDA-Public Use
  Company Number: US-SMITH AND NEPHEW, INC-2015SMT00193

PATIENT
  Age: 68 Year
  Sex: Male
  Weight: 81.63 kg

DRUGS (4)
  1. CONGENTIN [Concomitant]
     Dosage: UNK
  2. TRAMADOL. [Concomitant]
     Active Substance: TRAMADOL
     Dosage: UNK
  3. GEODON [Concomitant]
     Active Substance: ZIPRASIDONE HYDROCHLORIDE\ZIPRASIDONE MESYLATE
     Dosage: UNK, 2X/DAY
  4. REGRANEX [Suspect]
     Active Substance: BECAPLERMIN
     Indication: POST PROCEDURAL COMPLICATION
     Dosage: UNK, 2X/WEEK
     Route: 061
     Dates: end: 201507

REACTIONS (3)
  - Wound secretion [Recovering/Resolving]
  - Inappropriate schedule of drug administration [Recovered/Resolved]
  - Off label use [Recovered/Resolved]

NARRATIVE: CASE EVENT DATE: 201507
